FAERS Safety Report 9712986 (Version 1)
Quarter: 2013Q4

REPORT INFORMATION
  Report Type: Spontaneous
  Country: US (occurrence: US)
  Receive Date: 20131126
  Receipt Date: 20131126
  Transmission Date: 20140711
  Serious: No
  Sender: FDA-Public Use
  Company Number: US-BRISTOL-MYERS SQUIBB COMPANY-18959718

PATIENT
  Age: 41 Year
  Sex: Female
  Weight: 56.69 kg

DRUGS (3)
  1. BYDUREON [Suspect]
     Indication: TYPE 2 DIABETES MELLITUS
     Route: 058
     Dates: start: 201302
  2. FORTAMET [Concomitant]
     Route: 048
  3. ACARBOSE [Concomitant]

REACTIONS (5)
  - Injection site nodule [Unknown]
  - Glycosylated haemoglobin increased [Unknown]
  - Injection site mass [Unknown]
  - Injection site haemorrhage [Unknown]
  - Overdose [Not Recovered/Not Resolved]
